FAERS Safety Report 5346457-3 (Version None)
Quarter: 2007Q2

REPORT INFORMATION
  Report Type: 
  Country: None (occurrence: None)
  Receive Date: 20070426
  Receipt Date: 20060621
  Transmission Date: 20071010
  Serious: Yes (Hospitalization)
  Sender: FDA-Public Use
  Company Number: US-JNJFOC-20060602167

PATIENT
  Age: 25 Year
  Sex: Female

DRUGS (2)
  1. ULTRAM [Suspect]
     Indication: PAIN
     Dosage: 50 MG, ORAL
     Route: 048
     Dates: start: 20060401, end: 20060501
  2. TACRILIMUS (TACROLIMUS) [Concomitant]

REACTIONS (1)
  - CONVULSION [None]
